FAERS Safety Report 9901099 (Version 1)
Quarter: 2014Q1

REPORT INFORMATION
  Report Type: Spontaneous
  Country: US (occurrence: US)
  Receive Date: 20140217
  Receipt Date: 20140217
  Transmission Date: 20141002
  Serious: No
  Sender: FDA-Public Use
  Company Number: US-PFIZER INC-2014043668

PATIENT
  Age: 48 Year
  Sex: Female
  Weight: 52.2 kg

DRUGS (8)
  1. LYRICA [Suspect]
     Indication: DIABETIC NEUROPATHY
     Dosage: 50 MG, 2X/DAY
     Dates: start: 201312, end: 201312
  2. LYRICA [Suspect]
     Dosage: 75 MG, 4X/DAY
     Dates: start: 201312
  3. AMLODIPINE [Concomitant]
     Dosage: 5 MG, UNK
  4. COUMADINE [Concomitant]
     Dosage: 9 MG, 1X/DAY
  5. METOLAZONE [Concomitant]
     Dosage: 2.5 MG, 1X/DAY
  6. MS CONTIN [Concomitant]
     Dosage: 15 MG, 2X/DAY
  7. LASIX [Concomitant]
     Dosage: 20 MG, 2X/DAY
  8. SPIRONOLACTONE [Concomitant]
     Dosage: 25 MG, 2X/DAY

REACTIONS (1)
  - Somnolence [Recovered/Resolved]
